FAERS Safety Report 21163945 (Version 2)
Quarter: 2023Q2

REPORT INFORMATION
  Report Type: Report from Study
  Country: DE (occurrence: DE)
  Receive Date: 20220803
  Receipt Date: 20230424
  Transmission Date: 20230721
  Serious: Yes (Hospitalization)
  Sender: FDA-Public Use
  Company Number: DE-ABBVIE-22K-062-4490846-00

PATIENT
  Age: 63 Year
  Sex: Male

DRUGS (4)
  1. RINVOQ [Suspect]
     Active Substance: UPADACITINIB
     Indication: Rheumatoid arthritis
     Route: 048
     Dates: start: 202105
  2. METHOTREXATE SODIUM [Concomitant]
     Active Substance: METHOTREXATE SODIUM
     Indication: Rheumatoid arthritis
     Dosage: FIRST ADMIN DATE: BEFORE 21 DEC 2017?LAST ADMIN DATE: BETWEEN 27 AUG 2018AND 17 JAN 2019
  3. METHOTREXATE SODIUM [Concomitant]
     Active Substance: METHOTREXATE SODIUM
     Indication: Rheumatoid arthritis
     Dosage: FIRST ADMIN DATE: BETWEEN 27 AUG 2018AND 17 JAN 2019?LAST ADMIN DATE: BETWEEN 4 DEC 2019 AND 15 J...
  4. METHOTREXATE SODIUM [Concomitant]
     Active Substance: METHOTREXATE SODIUM
     Indication: Rheumatoid arthritis
     Dosage: FIRST ADMIN DATE: BETWEEN 4 DEC 2019 AND 15 JUN 2020

REACTIONS (2)
  - Gastritis [Recovered/Resolved]
  - Intestinal polyp [Recovered/Resolved]

NARRATIVE: CASE EVENT DATE: 20220504
